FAERS Safety Report 9721931 (Version 3)
Quarter: 2014Q1

REPORT INFORMATION
  Report Type: Report from Study
  Country: GB (occurrence: GB)
  Receive Date: 20131202
  Receipt Date: 20140221
  Transmission Date: 20141002
  Serious: Yes (Hospitalization, Other)
  Sender: FDA-Public Use
  Company Number: GB-ROCHE-1311235

PATIENT
  Age: 80 Year
  Sex: Female
  Weight: 70 kg

DRUGS (13)
  1. RANIBIZUMAB [Suspect]
     Indication: AGE-RELATED MACULAR DEGENERATION
     Route: 050
     Dates: start: 20121128
  2. RANIBIZUMAB [Suspect]
     Route: 050
     Dates: start: 20130423
  3. VENTOLIN [Concomitant]
     Route: 065
     Dates: start: 20130618
  4. TIOTROPIUM [Concomitant]
     Route: 065
     Dates: start: 200701
  5. TIOTROPIUM [Concomitant]
     Route: 065
     Dates: start: 20130618
  6. SERETIDE [Concomitant]
     Route: 065
     Dates: start: 20120723
  7. SERETIDE [Concomitant]
     Route: 065
     Dates: start: 20130618
  8. LOSARTAN [Concomitant]
     Route: 065
     Dates: start: 200705
  9. LOSARTAN [Concomitant]
     Route: 065
     Dates: start: 20130618
  10. FELODIPINE [Concomitant]
     Route: 065
     Dates: start: 200706
  11. FELODIPINE [Concomitant]
     Route: 065
     Dates: start: 20130618
  12. DOXAZOSIN [Concomitant]
     Route: 065
     Dates: start: 2003
  13. DOXAZOSIN [Concomitant]
     Route: 065
     Dates: start: 20130618

REACTIONS (3)
  - Pneumonia [Recovered/Resolved]
  - Atrial fibrillation [Not Recovered/Not Resolved]
  - Aortic stenosis [Not Recovered/Not Resolved]
